FAERS Safety Report 12977232 (Version 4)
Quarter: 2018Q2

REPORT INFORMATION
  Report Type: Spontaneous
  Country: FR (occurrence: FR)
  Receive Date: 20161128
  Receipt Date: 20180421
  Transmission Date: 20180711
  Serious: Yes (Death, Hospitalization, Other)
  Sender: FDA-Public Use
  Company Number: FR-ROCHE-1860040

PATIENT
  Age: 87 Year
  Sex: Female
  Weight: 67 kg

DRUGS (17)
  1. ONDANSETRON [Suspect]
     Active Substance: ONDANSETRON
     Indication: PROPHYLAXIS OF NAUSEA AND VOMITING
     Route: 042
     Dates: start: 20160304, end: 20160920
  2. ESIDREX [Concomitant]
     Active Substance: HYDROCHLOROTHIAZIDE
     Dosage: 0.5 TABLET IN THE MORNING
     Route: 065
  3. PRAVASTATINE [Concomitant]
     Active Substance: PRAVASTATIN
     Dosage: 1 TABLET IN THE EVENING
     Route: 065
  4. EMEND [Suspect]
     Active Substance: APREPITANT
     Indication: PROPHYLAXIS OF NAUSEA AND VOMITING
     Route: 048
     Dates: start: 20160304, end: 20160920
  5. KARDEGIC [Concomitant]
     Active Substance: ASPIRIN DL-LYSINE
     Dosage: 1 SACHET AT LUNCHTIME
     Route: 065
  6. LASILIX [Concomitant]
     Active Substance: FUROSEMIDE
     Dosage: 1 TABLET IN THE MORNING
     Route: 065
  7. METFORMIN [Concomitant]
     Active Substance: METFORMIN HYDROCHLORIDE
     Dosage: 1 TABLET AT LUNCHTIME
     Route: 065
  8. ESOMEPRAZOLE [Concomitant]
     Active Substance: ESOMEPRAZOLE
     Dosage: 1 TABLET IN THE EVENING
     Route: 065
  9. UVEDOSE [Concomitant]
     Active Substance: CHOLECALCIFEROL
     Dosage: 100 000 IU : 1 AMPULE IN THE MORNING EVERY 3 MONTHS
     Route: 065
  10. VINORELBINE [Concomitant]
     Active Substance: VINORELBINE\VINORELBINE TARTRATE
  11. EXFORGE [Concomitant]
     Active Substance: AMLODIPINE BESYLATE\VALSARTAN
     Dosage: 5/80 MG : 1 TABLET IN THE MORNING
     Route: 065
  12. REPAGLINIDE. [Concomitant]
     Active Substance: REPAGLINIDE
     Dosage: 2 DOSES IN THE MORNING, 1 DOSE AT LUNCHTIME AND 1 DOSE IN THE EVENING
     Route: 065
  13. UMULINE [Concomitant]
     Active Substance: INSULIN HUMAN
     Dosage: NPH 100 UNITS/ML : 16 IU IN THE MORNING AND IN THE EVENING
     Route: 065
  14. IMOVANE [Concomitant]
     Active Substance: ZOPICLONE
     Dosage: 1 TABLET IN THE EVENING
     Route: 065
  15. KADCYLA [Suspect]
     Active Substance: ADO-TRASTUZUMAB EMTANSINE
     Indication: INVASIVE DUCTAL BREAST CARCINOMA
     Route: 041
     Dates: start: 20160304, end: 20160920
  16. PROPRANOLOL [Concomitant]
     Active Substance: PROPRANOLOL HYDROCHLORIDE
     Dosage: 1 TABLET IN THE MORNING
     Route: 065
  17. TRASTUZUMAB. [Concomitant]
     Active Substance: TRASTUZUMAB
     Route: 065

REACTIONS (3)
  - Haematemesis [Unknown]
  - Venoocclusive liver disease [Not Recovered/Not Resolved]
  - Portal hypertension [Unknown]

NARRATIVE: CASE EVENT DATE: 201609
